FAERS Safety Report 9304472 (Version 6)
Quarter: 2016Q1

REPORT INFORMATION
  Report Type: Spontaneous
  Country: US (occurrence: US)
  Receive Date: 20130523
  Receipt Date: 20160311
  Transmission Date: 20160526
  Serious: No
  Sender: FDA-Public Use
  Company Number: US-009507513-1305USA012212

PATIENT
  Sex: Male
  Weight: 99.32 kg

DRUGS (3)
  1. PROPECIA [Suspect]
     Active Substance: FINASTERIDE
     Indication: ALOPECIA
     Dosage: 1 MG, QD
     Route: 048
     Dates: start: 20111021, end: 201112
  2. FINASTERIDE. [Suspect]
     Active Substance: FINASTERIDE
     Indication: ALOPECIA
     Dosage: 5 MG, QD
     Route: 048
     Dates: start: 201110, end: 201112
  3. PROPECIA [Suspect]
     Active Substance: FINASTERIDE
     Indication: ERECTILE DYSFUNCTION

REACTIONS (14)
  - Hormone level abnormal [Unknown]
  - Erectile dysfunction [Not Recovered/Not Resolved]
  - Brain injury [Unknown]
  - Impaired fasting glucose [Unknown]
  - Off label use [Unknown]
  - Vitamin D deficiency [Unknown]
  - Hyperlipidaemia [Unknown]
  - Asthenia [Unknown]
  - Soft tissue injury [Unknown]
  - Sexual dysfunction [Not Recovered/Not Resolved]
  - Essential hypertension [Unknown]
  - Fatigue [Unknown]
  - Libido decreased [Unknown]
  - Blood triglycerides increased [Unknown]

NARRATIVE: CASE EVENT DATE: 201110
